FAERS Safety Report 4467205-5 (Version None)
Quarter: 2004Q4

REPORT INFORMATION
  Report Type: 
  Country: None (occurrence: None)
  Receive Date: 20041001
  Receipt Date: 20040917
  Transmission Date: 20050328
  Serious: Yes (Hospitalization)
  Sender: FDA-Public Use
  Company Number: 02100-USA-04-0338

PATIENT
  Age: 71 Year
  Sex: Female

DRUGS (20)
  1. PLETAL [Suspect]
     Indication: INTERMITTENT CLAUDICATION
     Dosage: 100 MG BID ORAL
     Route: 048
     Dates: start: 20010726
  2. PLETAL [Suspect]
     Indication: INTERMITTENT CLAUDICATION
     Dosage: 50 MG BID ORAL
     Route: 048
     Dates: start: 20010726
  3. PLACEBO [Suspect]
     Indication: INTERMITTENT CLAUDICATION
     Dosage: 2 DF BID ORAL
     Route: 048
     Dates: start: 20010726
  4. PLACEBO [Suspect]
     Indication: INTERMITTENT CLAUDICATION
     Dosage: 1 DF BID ORAL
     Route: 048
     Dates: start: 20010726
  5. IRON [Concomitant]
  6. ASPIRIN [Concomitant]
  7. HYDROCHLOROTHIAZIDE [Concomitant]
  8. PRAVACHOL [Concomitant]
  9. CALTRATE [Concomitant]
  10. IBUPROFEN [Concomitant]
  11. GLYBURIDE [Concomitant]
  12. METFORMIN HCL [Concomitant]
  13. NIFEDIPINE [Concomitant]
  14. ENALAPRIL MALEATE [Concomitant]
  15. PEPCID [Concomitant]
  16. LISINOPRIL [Concomitant]
  17. TUMS [Concomitant]
  18. NIACIN [Concomitant]
  19. TRIAMTERENE [Concomitant]
  20. CLARITIN [Concomitant]

REACTIONS (3)
  - DEEP VEIN THROMBOSIS [None]
  - IRON DEFICIENCY ANAEMIA [None]
  - PULMONARY EMBOLISM [None]
